FAERS Safety Report 5427798-8 (Version None)
Quarter: 2007Q3

REPORT INFORMATION
  Report Type: 
  Country: None (occurrence: None)
  Receive Date: 20070823
  Receipt Date: 20070813
  Transmission Date: 20080115
  Serious: Yes (Other)
  Sender: FDA-Public Use
  Company Number: 230224M07USA

PATIENT
  Age: 57 Year
  Sex: Female
  Weight: 68.9467 kg

DRUGS (3)
  1. REBIF [Suspect]
     Indication: MULTIPLE SCLEROSIS
     Dosage: 44 MCG, 2 IN 1 WEEKS, SUBCUTANEOUS
     Route: 058
     Dates: start: 20060606
  2. DIPENTUM [Concomitant]
  3. NITROFURANTOIN [Concomitant]

REACTIONS (2)
  - MALIGNANT NEOPLASM PROGRESSION [None]
  - SARCOMA UTERUS [None]
